FAERS Safety Report 7754639-6 (Version None)
Quarter: 2011Q3

REPORT INFORMATION
  Report Type: 
  Country: None (occurrence: None)
  Receive Date: 20110915
  Receipt Date: 20110628
  Transmission Date: 20111222
  Serious: No
  Sender: FDA-Public Use
  Company Number: US-ALLERGAN-1108719US

PATIENT
  Age: 89 Year
  Sex: Female

DRUGS (2)
  1. LUMIGAN [Suspect]
  2. LUMIGAN [Suspect]
     Indication: GLAUCOMA
     Dosage: 1 GTT, QHS
     Route: 047
     Dates: start: 20110626

REACTIONS (1)
  - EYE IRRITATION [None]
